FAERS Safety Report 5450543-7 (Version None)
Quarter: 2007Q3

REPORT INFORMATION
  Report Type: 
  Country: None (occurrence: None)
  Receive Date: 20070910
  Receipt Date: 20070827
  Transmission Date: 20080115
  Serious: Yes (Other)
  Sender: FDA-Public Use
  Company Number: 237211K07USA

PATIENT
  Age: 50 Year
  Sex: Female

DRUGS (1)
  1. REBIF [Suspect]
     Indication: MULTIPLE SCLEROSIS
     Dosage: 44 MCG, 3 IN WEEKS, SUBCUTANEOUS 44 MCG, 3 IN WEEKS, SUBCUTANEOUS
     Route: 058
     Dates: start: 20070404

REACTIONS (5)
  - CARDIAC DISORDER [None]
  - DEPRESSION [None]
  - INJECTION SITE BRUISING [None]
  - INJECTION SITE ERYTHEMA [None]
  - INJECTION SITE IRRITATION [None]
